FAERS Safety Report 12524830 (Version 3)
Quarter: 2016Q4

REPORT INFORMATION
  Report Type: Spontaneous
  Country: JP (occurrence: JP)
  Receive Date: 20160704
  Receipt Date: 20161025
  Transmission Date: 20170207
  Serious: Yes (Hospitalization, Other)
  Sender: FDA-Public Use
  Company Number: JP-PFIZER INC-2016321650

PATIENT
  Age: 63 Year
  Sex: Male
  Weight: 50 kg

DRUGS (8)
  1. RHEUMATREX [Suspect]
     Active Substance: METHOTREXATE SODIUM
     Indication: RHEUMATOID ARTHRITIS
     Dosage: 6 MG, WEEKLY
     Route: 048
     Dates: end: 20160612
  2. METHYCOBAL [Concomitant]
     Active Substance: METHYLCOBALAMIN
     Dosage: UNK
  3. CANDESARTAN CILEXETIL. [Concomitant]
     Active Substance: CANDESARTAN CILEXETIL
     Dosage: UNK
  4. FOLIAMIN [Concomitant]
     Active Substance: FOLIC ACID
  5. FEBURIC [Concomitant]
     Active Substance: FEBUXOSTAT
     Dosage: UNK
  6. MEDROL [Concomitant]
     Active Substance: METHYLPREDNISOLONE
     Dosage: UNK
  7. NEXIUM [Concomitant]
     Active Substance: ESOMEPRAZOLE MAGNESIUM
     Dosage: UNK
  8. SODIUM FERROUS CITRATE [Concomitant]
     Active Substance: SODIUM FERROUS CITRATE
     Dosage: UNK

REACTIONS (10)
  - Skin mass [Unknown]
  - Vomiting [Unknown]
  - Loss of consciousness [Unknown]
  - Nausea [Unknown]
  - General physical health deterioration [Unknown]
  - Hypophagia [Unknown]
  - Lymphoma [Not Recovered/Not Resolved]
  - Dizziness [Unknown]
  - Septic shock [Recovered/Resolved]
  - Dysphoria [Unknown]

NARRATIVE: CASE EVENT DATE: 201604
